FAERS Safety Report 9517482 (Version 1)
Quarter: 2013Q3

REPORT INFORMATION
  Report Type: Spontaneous
  Country: US (occurrence: US)
  Receive Date: 20130911
  Receipt Date: 20130911
  Transmission Date: 20140515
  Serious: No
  Sender: FDA-Public Use
  Company Number: US-009507513-1309USA002833

PATIENT
  Sex: Female

DRUGS (2)
  1. NEXPLANON [Suspect]
     Indication: CONTRACEPTION
     Dosage: 68 MG / 3 YEAR IMPLANT
     Route: 059
     Dates: start: 20130903, end: 20130903
  2. NEXPLANON [Suspect]
     Dosage: 68 MG / 3 YEAR IMPLANT
     Route: 059
     Dates: start: 20130903

REACTIONS (3)
  - Device difficult to use [Recovered/Resolved]
  - Product quality issue [Unknown]
  - No adverse event [Unknown]
